FAERS Safety Report 16607845 (Version 1)
Quarter: 2019Q3

REPORT INFORMATION
  Report Type: Spontaneous
  Country: US (occurrence: US)
  Receive Date: 20190606
  Receipt Date: 20190606
  Transmission Date: 20191004
  Serious: No
  Sender: FDA-Public Use
  Company Number: None

PATIENT
  Age: 83 Year
  Sex: Female

DRUGS (1)
  1. XIIDRA [Suspect]
     Active Substance: LIFITEGRAST
     Indication: XEROPHTHALMIA
     Route: 047
     Dates: start: 20190406, end: 20190604

REACTIONS (4)
  - Eye irritation [None]
  - Eye colour change [None]
  - Iris disorder [None]
  - Vision blurred [None]

NARRATIVE: CASE EVENT DATE: 20190406
